FAERS Safety Report 26182436 (Version 1)
Quarter: 2025Q4

REPORT INFORMATION
  Report Type: Spontaneous
  Country: US (occurrence: US)
  Receive Date: 20251221
  Receipt Date: 20251221
  Transmission Date: 20260117
  Serious: No
  Sender: ACCORD
  Company Number: US-COHERUS BIOSCIENCES, INC-2024-COH-US001239

PATIENT
  Age: 64 Year
  Sex: Male

DRUGS (3)
  1. UDENYCA [Suspect]
     Active Substance: PEGFILGRASTIM-CBQV
     Indication: Product used for unknown indication
     Dosage: UNK
     Route: 058
     Dates: start: 20241126
  2. METOPROLOL SUCCINATE [Concomitant]
     Active Substance: METOPROLOL SUCCINATE
  3. DOFETILIDE [Concomitant]
     Active Substance: DOFETILIDE

REACTIONS (5)
  - Device leakage [Recovered/Resolved]
  - Device malfunction [Recovered/Resolved]
  - Accidental exposure to product [Recovered/Resolved]
  - No adverse event [Unknown]
  - Device malfunction [Recovered/Resolved]

NARRATIVE: CASE EVENT DATE: 20241126
